FAERS Safety Report 17651424 (Version 1)
Quarter: 2020Q2

REPORT INFORMATION
  Report Type: Spontaneous
  Country: DE (occurrence: DE)
  Receive Date: 20200409
  Receipt Date: 20200409
  Transmission Date: 20200713
  Serious: Yes (Other)
  Sender: FDA-Public Use
  Company Number: DE-TEVA-2020-DE-1220972

PATIENT
  Age: 64 Year
  Sex: Female
  Weight: 90 kg

DRUGS (2)
  1. EZETIMIB [Concomitant]
     Active Substance: EZETIMIBE
     Dosage: 10MG
     Dates: start: 2018
  2. ATORVASTATIN [Suspect]
     Active Substance: ATORVASTATIN
     Indication: HYPERCHOLESTEROLAEMIA
     Dosage: 20MG
     Route: 065
     Dates: start: 2016

REACTIONS (5)
  - Oropharyngeal pain [Recovering/Resolving]
  - Paresis [Recovering/Resolving]
  - Sinusitis [Recovering/Resolving]
  - Rhabdomyolysis [Recovering/Resolving]
  - Cough [Recovering/Resolving]

NARRATIVE: CASE EVENT DATE: 20200306
